FAERS Safety Report 18201251 (Version 3)
Quarter: 2020Q3

REPORT INFORMATION
  Report Type: Spontaneous
  Country: US (occurrence: US)
  Receive Date: 20200827
  Receipt Date: 20200907
  Transmission Date: 20201103
  Serious: No
  Sender: FDA-Public Use
  Company Number: US-BIOVITRUM-2020US4455

PATIENT
  Age: 87 Year
  Sex: Male

DRUGS (1)
  1. ANAKINRA [Suspect]
     Active Substance: ANAKINRA
     Indication: IMMUNE SYSTEM DISORDER
     Dosage: 2 DOSES.

REACTIONS (1)
  - Off label use [Unknown]
